FAERS Safety Report 16416673 (Version 2)
Quarter: 2020Q1

REPORT INFORMATION
  Report Type: Spontaneous
  Country: US (occurrence: US)
  Receive Date: 20190611
  Receipt Date: 20200327
  Transmission Date: 20200409
  Serious: Yes (Other)
  Sender: FDA-Public Use
  Company Number: US-BAYER-2019-111485

PATIENT
  Age: 35 Year
  Sex: Female

DRUGS (1)
  1. MIRENA [Suspect]
     Active Substance: LEVONORGESTREL
     Indication: CONTRACEPTION
     Dosage: 20 ?G PER DAY CONTINUOUSLY
     Route: 015
     Dates: start: 2012, end: 201805

REACTIONS (6)
  - Papillary thyroid cancer [Recovered/Resolved]
  - Pain [None]
  - Major depression [Recovering/Resolving]
  - Device use issue [Recovered/Resolved]
  - Dyspnoea [None]
  - Ear pain [None]

NARRATIVE: CASE EVENT DATE: 2012
